FAERS Safety Report 23746601 (Version 1)
Quarter: 2024Q2

REPORT INFORMATION
  Report Type: Spontaneous
  Country: JP (occurrence: JP)
  Receive Date: 20240416
  Receipt Date: 20240416
  Transmission Date: 20240716
  Serious: Yes (Other)
  Sender: FDA-Public Use
  Company Number: JP-ORGANON-O2404JPN001750

PATIENT
  Age: 36 Year
  Sex: Female

DRUGS (3)
  1. EZETIMIBE [Suspect]
     Active Substance: EZETIMIBE
     Dosage: 10 MG/ DAY
     Route: 048
  2. EVOLOCUMAB [Concomitant]
     Active Substance: EVOLOCUMAB
     Dosage: 420 MILLIGRAM, MONTH
     Route: 048
  3. PRASUGREL HYDROCHLORIDE [Concomitant]
     Active Substance: PRASUGREL HYDROCHLORIDE
     Dosage: UNK

REACTIONS (3)
  - Foetal death [Unknown]
  - Complication of pregnancy [Unknown]
  - Abdominal pain upper [Unknown]
